FAERS Safety Report 19621932 (Version 6)
Quarter: 2022Q1

REPORT INFORMATION
  Report Type: Report from Study
  Country: US (occurrence: US)
  Receive Date: 20210728
  Receipt Date: 20220211
  Transmission Date: 20220423
  Serious: No
  Sender: FDA-Public Use
  Company Number: NVSC2021US162806

PATIENT
  Sex: Male

DRUGS (2)
  1. COSENTYX [Suspect]
     Active Substance: SECUKINUMAB
     Indication: Psoriasis
     Dosage: 300 MG, QW(0,1,2,3,4,5) WEEK
     Route: 058
  2. COSENTYX [Suspect]
     Active Substance: SECUKINUMAB
     Dosage: 300 MG, Q4W
     Route: 058

REACTIONS (9)
  - Flushing [Unknown]
  - Erythema [Unknown]
  - Feeling of body temperature change [Unknown]
  - Fatigue [Unknown]
  - Feeling hot [Unknown]
  - Disorientation [Unknown]
  - Arthralgia [Unknown]
  - Pain in extremity [Unknown]
  - Rash [Unknown]
